FAERS Safety Report 6495463-4 (Version None)
Quarter: 2009Q4

REPORT INFORMATION
  Report Type: 
  Country: None (occurrence: None)
  Receive Date: 20091214
  Receipt Date: 20090707
  Transmission Date: 20100525
  Serious: No
  Sender: FDA-Public Use
  Company Number: US-BRISTOL-MYERS SQUIBB COMPANY-14681548

PATIENT
  Age: 72 Year
  Sex: Female
  Weight: 56 kg

DRUGS (4)
  1. ABILIFY [Suspect]
     Indication: DEPRESSION
     Route: 048
     Dates: start: 20090616
  2. ABILIFY [Suspect]
     Indication: STRESS
     Route: 048
     Dates: start: 20090616
  3. LEXAPRO [Concomitant]
  4. LIPITOR [Concomitant]

REACTIONS (1)
  - INTRAOCULAR PRESSURE INCREASED [None]
